FAERS Safety Report 11391478 (Version 3)
Quarter: 2015Q3

REPORT INFORMATION
  Report Type: Spontaneous
  Country: DE (occurrence: JP)
  Receive Date: 20150818
  Receipt Date: 20150924
  Transmission Date: 20151125
  Serious: Yes (Hospitalization)
  Sender: FDA-Public Use
  Company Number: JP-FRI-1000078969

PATIENT
  Age: 81 Year
  Sex: Female
  Weight: 44 kg

DRUGS (9)
  1. MEMANTINE. [Suspect]
     Active Substance: MEMANTINE
     Dosage: 15 MG
     Route: 048
     Dates: start: 20150521, end: 20150715
  2. MEMANTINE. [Suspect]
     Active Substance: MEMANTINE
     Dosage: 20 MG
     Route: 048
     Dates: start: 20150716, end: 20150731
  3. CRESTOR [Concomitant]
     Active Substance: ROSUVASTATIN CALCIUM
  4. AROTINOLOL HCL [Concomitant]
  5. LENDORMIN [Concomitant]
     Active Substance: BROTIZOLAM
  6. KETAS KYORIN [Concomitant]
  7. MEMANTINE. [Suspect]
     Active Substance: MEMANTINE
     Indication: DEMENTIA ALZHEIMER^S TYPE
     Dosage: 5 MG
     Route: 048
     Dates: start: 20150312, end: 20150408
  8. MEMANTINE. [Suspect]
     Active Substance: MEMANTINE
     Dosage: 10 MG
     Route: 048
     Dates: start: 20150409, end: 20150520
  9. OLMETEC [Concomitant]
     Active Substance: OLMESARTAN MEDOXOMIL

REACTIONS (3)
  - Face oedema [Recovering/Resolving]
  - Ocular hyperaemia [Recovered/Resolved]
  - Dyskinesia [Recovering/Resolving]

NARRATIVE: CASE EVENT DATE: 201507
